FAERS Safety Report 17238090 (Version 1)
Quarter: 2020Q1

REPORT INFORMATION
  Report Type: Spontaneous
  Country: US (occurrence: US)
  Receive Date: 20200106
  Receipt Date: 20200106
  Transmission Date: 20200409
  Serious: No
  Sender: FDA-Public Use
  Company Number: US-PACIRA-201900254

PATIENT

DRUGS (2)
  1. MARCAINE [Suspect]
     Active Substance: BUPIVACAINE HYDROCHLORIDE
     Indication: NERVE BLOCK
  2. EXPAREL [Suspect]
     Active Substance: BUPIVACAINE
     Indication: NERVE BLOCK
     Dosage: 266 MG EXPAREL ADMIXED WITH MARCAINE AFTER 40ML OF MARCAINE 0.5% USED
     Route: 014

REACTIONS (2)
  - Labelled drug-drug interaction medication error [Unknown]
  - Intentional product use issue [Unknown]
